FAERS Safety Report 6227002-7 (Version None)
Quarter: 2009Q2

REPORT INFORMATION
  Report Type: 
  Country: None (occurrence: None)
  Receive Date: 20090612
  Receipt Date: 20060307
  Transmission Date: 20091009
  Serious: Yes (Hospitalization)
  Sender: FDA-Public Use
  Company Number: AU-PFIZER INC-2006029240

PATIENT
  Age: 83 Year

DRUGS (5)
  1. SUNITINIB MALATE [Suspect]
     Indication: GASTROINTESTINAL STROMAL TUMOUR
     Dosage: 37.5 MG, 1X/DAY
     Route: 048
     Dates: start: 20051115
  2. SUNITINIB MALATE [Suspect]
     Route: 048
     Dates: start: 20051115
  3. SIMVASTATIN [Concomitant]
     Route: 048
     Dates: start: 19950501
  4. SOLPRIN [Concomitant]
     Route: 048
     Dates: start: 19950501
  5. ALDACTONE [Concomitant]
     Route: 048
     Dates: start: 20051213

REACTIONS (5)
  - ANAEMIA [None]
  - MYOCARDIAL INFARCTION [None]
  - PYREXIA [None]
  - RECTAL HAEMORRHAGE [None]
  - SYNCOPE [None]
